FAERS Safety Report 6663151-7 (Version None)
Quarter: 2010Q2

REPORT INFORMATION
  Report Type: 
  Country: None (occurrence: None)
  Receive Date: 20100401
  Receipt Date: 20100322
  Transmission Date: 20101027
  Serious: Yes (Life-Threatening, Hospitalization, Other)
  Sender: FDA-Public Use
  Company Number: US-NAPPMUNDI-USA-2010-0041699

PATIENT
  Age: 24 Year
  Sex: Female
  Weight: 49.887 kg

DRUGS (1)
  1. OXYCONTIN [Suspect]
     Indication: DRUG ABUSE
     Dosage: UNK MG, DAILY
     Dates: start: 20030101

REACTIONS (8)
  - CONVULSION [None]
  - DISTURBANCE IN ATTENTION [None]
  - DRUG ABUSE [None]
  - DRUG DEPENDENCE [None]
  - DRUG WITHDRAWAL SYNDROME [None]
  - HYPOXIA [None]
  - OVERDOSE [None]
  - RESPIRATORY ARREST [None]
